FAERS Safety Report 15449818 (Version 1)
Quarter: 2018Q3

REPORT INFORMATION
  Report Type: Spontaneous
  Country: US (occurrence: US)
  Receive Date: 20180926
  Receipt Date: 20180926
  Transmission Date: 20181010
  Serious: Yes (Hospitalization)
  Sender: FDA-Public Use
  Company Number: None

PATIENT
  Sex: Male
  Weight: 67.6 kg

DRUGS (7)
  1. NELARABINE [Suspect]
     Active Substance: NELARABINE
     Indication: ACUTE LYMPHOCYTIC LEUKAEMIA
     Dosage: 1500 MG/M2 DAY 1,3,5 Q21 DAYS; INTRAVENOUS DRIP?
     Route: 041
     Dates: start: 20180618, end: 20180629
  2. LOPERAMIDE [Concomitant]
     Active Substance: LOPERAMIDE
  3. CYTARABINE. [Concomitant]
     Active Substance: CYTARABINE
  4. CLONAZEPAM. [Concomitant]
     Active Substance: CLONAZEPAM
  5. MIRTAZAPINE. [Concomitant]
     Active Substance: MIRTAZAPINE
  6. FLUDARABINE [Concomitant]
     Active Substance: FLUDARABINE PHOSPHATE
  7. IT AND HD MTX [Concomitant]

REACTIONS (4)
  - Mental status changes [None]
  - Asthenia [None]
  - Fall [None]
  - Leukaemia recurrent [None]
